FAERS Safety Report 4512121-3 (Version None)
Quarter: 2004Q4

REPORT INFORMATION
  Report Type: 
  Country: None (occurrence: None)
  Receive Date: 20041129
  Receipt Date: 20041115
  Transmission Date: 20050328
  Serious: Yes (Life-Threatening, Hospitalization)
  Sender: FDA-Public Use
  Company Number: US-ROCHE-386479

PATIENT
  Age: 46 Year
  Sex: Male

DRUGS (6)
  1. PEG-INTERFERON ALFA NOS [Suspect]
     Indication: HEPATITIS C
     Route: 058
     Dates: start: 20040130, end: 20041001
  2. RIBAVIRIN [Suspect]
     Indication: HEPATITIS C
     Route: 048
     Dates: start: 20040130, end: 20041001
  3. PROVENTIL [Concomitant]
     Indication: ASTHMA
  4. VIOXX [Concomitant]
     Indication: DRUG USE FOR UNKNOWN INDICATION
  5. BENICAR [Concomitant]
  6. ALLEGRA [Concomitant]
     Dates: start: 20030715

REACTIONS (8)
  - DEPRESSION [None]
  - FATIGUE [None]
  - LEUKAEMIA MONOCYTIC [None]
  - NEUTROPHIL COUNT DECREASED [None]
  - NIGHT SWEATS [None]
  - PLATELET COUNT DECREASED [None]
  - PYREXIA [None]
  - WHITE BLOOD CELL COUNT DECREASED [None]
